FAERS Safety Report 5096785-4 (Version None)
Quarter: 2006Q3

REPORT INFORMATION
  Report Type: 
  Country: None (occurrence: None)
  Receive Date: 20060831
  Receipt Date: 20060823
  Transmission Date: 20061208
  Serious: Yes (Other)
  Sender: FDA-Public Use
  Company Number: 2006-02053

PATIENT
  Age: 59 Year
  Sex: Female

DRUGS (6)
  1. VELCADE [Suspect]
     Indication: MULTIPLE MYELOMA
     Dosage: 1.30 MG/M2
     Dates: start: 20060731, end: 20060803
  2. COTRIM [Concomitant]
  3. FLUCONAZOLE [Concomitant]
  4. BACTRIMEL (SULFAMETHOXAZOLE, TRIMETHOPRIM) [Concomitant]
  5. THYRAX (LEVOTHYROXINE) [Concomitant]
  6. DEXAMETHASONE TAB [Concomitant]

REACTIONS (2)
  - TACHYCARDIA [None]
  - VENTRICULAR EXTRASYSTOLES [None]
